FAERS Safety Report 5009685-2 (Version None)
Quarter: 2006Q2

REPORT INFORMATION
  Report Type: 
  Country: None (occurrence: None)
  Receive Date: 20060522
  Receipt Date: 20060505
  Transmission Date: 20061013
  Serious: Yes (Hospitalization)
  Sender: FDA-Public Use
  Company Number: 225080

PATIENT
  Age: 51 Year
  Sex: Male

DRUGS (1)
  1. AVASTIN [Suspect]
     Indication: HEPATIC NEOPLASM MALIGNANT
     Dosage: 265 MG, Q2W, INTRAVENOUS
     Route: 042
     Dates: start: 20060327, end: 20060424

REACTIONS (10)
  - ABDOMINAL PAIN UPPER [None]
  - ASCITES [None]
  - CHOLESTASIS [None]
  - CYTOLYTIC HEPATITIS [None]
  - ENCEPHALOPATHY [None]
  - GENERAL PHYSICAL HEALTH DETERIORATION [None]
  - HEPATIC CIRRHOSIS [None]
  - HEPATOMEGALY [None]
  - HYPERCALCAEMIA [None]
  - PYREXIA [None]
